FAERS Safety Report 22092460 (Version 2)
Quarter: 2023Q1

REPORT INFORMATION
  Report Type: Spontaneous
  Country: US (occurrence: US)
  Receive Date: 20230314
  Receipt Date: 20230327
  Transmission Date: 20230418
  Serious: No
  Sender: FDA-Public Use
  Company Number: US-MACLEODS PHARMACEUTICALS US LTD-MAC2023040153

PATIENT

DRUGS (1)
  1. CLOBETASOL [Suspect]
     Active Substance: CLOBETASOL
     Indication: Skin disorder
     Dosage: UNK UNK, BID (0.05)
     Route: 065
     Dates: start: 202209, end: 202301

REACTIONS (3)
  - Diplopia [Recovered/Resolved]
  - Eye disorder [Unknown]
  - Incorrect product administration duration [Unknown]
